FAERS Safety Report 13532304 (Version 1)
Quarter: 2017Q2

REPORT INFORMATION
  Report Type: Spontaneous
  Country: GB (occurrence: GB)
  Receive Date: 20170510
  Receipt Date: 20170510
  Transmission Date: 20170830
  Serious: Yes (Disabling, Other)
  Sender: FDA-Public Use
  Company Number: GB-TEVA-766059ACC

PATIENT
  Age: 78 Year
  Sex: Female
  Weight: 66.22 kg

DRUGS (5)
  1. PERINDOPRIL ERBUMINE. [Concomitant]
     Active Substance: PERINDOPRIL ERBUMINE
  2. ATORVASTATIN [Suspect]
     Active Substance: ATORVASTATIN
     Indication: HYPERCHOLESTEROLAEMIA
     Route: 048
     Dates: start: 2012, end: 201704
  3. DOXAZOSIN MESYLATE. [Concomitant]
     Active Substance: DOXAZOSIN MESYLATE
  4. MEBEVERINE [Concomitant]
     Active Substance: MEBEVERINE
  5. ATENOLOL. [Concomitant]
     Active Substance: ATENOLOL

REACTIONS (5)
  - Hepatic congestion [Recovered/Resolved]
  - Diarrhoea [Unknown]
  - Fluctuance [Unknown]
  - Gastrointestinal pain [Recovered/Resolved]
  - Vomiting [Recovered/Resolved]

NARRATIVE: CASE EVENT DATE: 2012
